FAERS Safety Report 24405039 (Version 1)
Quarter: 2024Q4

REPORT INFORMATION
  Report Type: Spontaneous
  Country: US (occurrence: US)
  Receive Date: 20241007
  Receipt Date: 20241007
  Transmission Date: 20250115
  Serious: No
  Sender: ROCHE
  Company Number: US-ROCHE-3554234

PATIENT
  Age: 73 Year
  Sex: Male
  Weight: 90.2 kg

DRUGS (1)
  1. GAZYVA [Suspect]
     Active Substance: OBINUTUZUMAB
     Indication: Chronic lymphocytic leukaemia
     Dosage: 100 MG FOR THE FIRST DOSE AND 900 MG THE FOLLOWING DAY ;ONGOING: YES
     Route: 042
     Dates: start: 20240424

REACTIONS (1)
  - Swelling [Recovered/Resolved]

NARRATIVE: CASE EVENT DATE: 20240424
